FAERS Safety Report 9840380 (Version 1)
Quarter: 2014Q1

REPORT INFORMATION
  Report Type: Spontaneous
  Country: CO (occurrence: CO)
  Receive Date: 20140124
  Receipt Date: 20140124
  Transmission Date: 20141002
  Serious: Yes (Hospitalization, Other)
  Sender: FDA-Public Use
  Company Number: CO-JNJFOC-20140111521

PATIENT
  Age: 22 Year
  Sex: Male

DRUGS (2)
  1. RISPERDAL CONSTA [Suspect]
     Indication: SCHIZOPHRENIA
     Route: 030
     Dates: start: 20131210
  2. CLONAZEPAM [Suspect]
     Indication: SUICIDE ATTEMPT
     Dosage: SEVERAL TABLETS
     Route: 065

REACTIONS (1)
  - Suicide attempt [Recovering/Resolving]
